APPROVED DRUG PRODUCT: GADOBUTROL
Active Ingredient: GADOBUTROL
Strength: 1.20944GM/2ML (604.72MG/ML)
Dosage Form/Route: SOLUTION;INTRAVENOUS
Application: A217480 | Product #003 | TE Code: AP
Applicant: HAINAN POLY PHARMACEUTICAL CO LTD
Approved: Apr 16, 2025 | RLD: No | RS: No | Type: RX